FAERS Safety Report 9500077 (Version 1)
Quarter: 2013Q3

REPORT INFORMATION
  Report Type: Spontaneous
  Country: US (occurrence: US)
  Receive Date: 20130905
  Receipt Date: 20130905
  Transmission Date: 20140515
  Serious: Yes (Other)
  Sender: FDA-Public Use
  Company Number: PHEH2013US018540

PATIENT
  Age: 38 Year
  Sex: Male

DRUGS (1)
  1. RITALIN LA [Suspect]
     Indication: BIPOLAR I DISORDER
     Dosage: UNK UKN, BID
     Route: 048
     Dates: start: 20130811

REACTIONS (2)
  - Dysarthria [Not Recovered/Not Resolved]
  - Cognitive disorder [Not Recovered/Not Resolved]
